FAERS Safety Report 7229870-9 (Version None)
Quarter: 2011Q1

REPORT INFORMATION
  Report Type: 
  Country: None (occurrence: None)
  Receive Date: 20110117
  Receipt Date: 20110112
  Transmission Date: 20110831
  Serious: Yes (Life-Threatening, Other)
  Sender: FDA-Public Use
  Company Number: JP-PFIZER INC-2010173143

PATIENT
  Age: 62 Year
  Sex: Female
  Weight: 70 kg

DRUGS (13)
  1. CHAMPIX [Suspect]
     Indication: SMOKING CESSATION THERAPY
     Dosage: 0.5 MG, 2X/DAY
     Route: 048
     Dates: start: 20100810, end: 20100812
  2. SOLANAX [Concomitant]
     Indication: INSOMNIA
     Dosage: 0.4 MG, DAILY
     Route: 048
  3. LIPOBLOCK [Concomitant]
     Indication: HYPERLIPIDAEMIA
     Dosage: 5 MG, 1X/DAY
     Route: 048
     Dates: start: 20100305
  4. TOWARAT [Concomitant]
     Indication: HYPERTENSION
     Dosage: 20 MG, 2X/DAY
     Route: 048
     Dates: start: 20060110
  5. CHAMPIX [Suspect]
     Dosage: 1 MG, 2X/DAY
     Route: 048
     Dates: start: 20100817, end: 20100920
  6. NOVOLIN R [Concomitant]
     Indication: DIABETES MELLITUS
     Dosage: 22 IU, 1X/DAY
     Route: 058
     Dates: start: 20070530
  7. NOVORAPID [Concomitant]
     Indication: DIABETES MELLITUS
     Dosage: 14 IU, 2X/DAY
     Route: 058
     Dates: start: 20070530
  8. CHAMPIX [Suspect]
     Dosage: 0.5 MG, 2X/DAY
     Route: 048
     Dates: start: 20100813, end: 20100816
  9. DIOVAN [Concomitant]
     Indication: HYPERTENSION
     Dosage: 80 MG, 1X/DAY
     Route: 048
     Dates: start: 20090610
  10. MECOBALAMIN [Concomitant]
     Indication: NEUROPATHY PERIPHERAL
     Dosage: 500 UG, 3X/DAY
     Route: 048
     Dates: start: 20100305
  11. HALCION [Concomitant]
     Indication: INSOMNIA
     Dosage: 0.25 MG, 1X/DAY
     Route: 048
     Dates: start: 20100616
  12. OMEPRAZOLE [Concomitant]
     Indication: REFLUX OESOPHAGITIS
     Dosage: 20 MG, 1X/DAY
     Route: 048
     Dates: start: 20001211
  13. PANALDINE [Concomitant]
     Indication: ANGINA PECTORIS
     Dosage: 100 MG, 3X/DAY
     Route: 048
     Dates: start: 20081128

REACTIONS (12)
  - MALAISE [None]
  - DECREASED APPETITE [None]
  - BLOOD PRESSURE INCREASED [None]
  - DEPRESSION [None]
  - HEADACHE [None]
  - SUICIDAL IDEATION [None]
  - INSOMNIA [None]
  - FEELING ABNORMAL [None]
  - GINGIVAL BLEEDING [None]
  - NAUSEA [None]
  - ABDOMINAL DISCOMFORT [None]
  - EYE PAIN [None]
